FAERS Safety Report 10075639 (Version 1)
Quarter: 2014Q2

REPORT INFORMATION
  Report Type: Spontaneous
  Country: ZA (occurrence: ZA)
  Receive Date: 20140414
  Receipt Date: 20140414
  Transmission Date: 20141212
  Serious: Yes (Death, Hospitalization)
  Sender: FDA-Public Use
  Company Number: ZA-JNJFOC-20140405648

PATIENT
  Age: 61 Year
  Sex: Female

DRUGS (2)
  1. XARELTO [Suspect]
     Indication: THROMBOSIS PROPHYLAXIS
     Route: 048
     Dates: start: 20140314, end: 20140320
  2. XARELTO [Suspect]
     Indication: KNEE ARTHROPLASTY
     Route: 048
     Dates: start: 20140314, end: 20140320

REACTIONS (17)
  - Septic shock [Fatal]
  - Sepsis [Unknown]
  - Anaemia [Unknown]
  - Pyrexia [Unknown]
  - White blood cell count increased [Unknown]
  - Pallor [Unknown]
  - Vomiting [Unknown]
  - Haematochezia [Unknown]
  - Acute respiratory failure [Unknown]
  - Toxicity to various agents [Unknown]
  - Hypotension [Unknown]
  - Gastric ulcer haemorrhage [Unknown]
  - Renal failure acute [Unknown]
  - Pancreatitis necrotising [Unknown]
  - Gastroenteritis Escherichia coli [Unknown]
  - Sepsis [Unknown]
  - Encephalopathy [Unknown]
